FAERS Safety Report 6039665-X (Version None)
Quarter: 2009Q1

REPORT INFORMATION
  Report Type: 
  Country: None (occurrence: None)
  Receive Date: 20090116
  Receipt Date: 20090113
  Transmission Date: 20090719
  Serious: Yes (Death)
  Sender: FDA-Public Use
  Company Number: US-BRISTOL-MYERS SQUIBB COMPANY-14470876

PATIENT
  Age: 76 Year
  Sex: Male

DRUGS (5)
  1. METFORMIN HCL [Suspect]
     Route: 048
  2. GLYBURIDE [Suspect]
     Route: 048
  3. SERTRALINE [Suspect]
     Route: 048
  4. TRAMADOL HCL [Suspect]
     Route: 048
  5. L-DOPA [Suspect]
     Route: 048

REACTIONS (1)
  - COMPLETED SUICIDE [None]
